FAERS Safety Report 18136253 (Version 3)
Quarter: 2020Q4

REPORT INFORMATION
  Report Type: Spontaneous
  Country: US (occurrence: US)
  Receive Date: 20200811
  Receipt Date: 20201118
  Transmission Date: 20210113
  Serious: Yes (Other)
  Sender: FDA-Public Use
  Company Number: US-AMGEN-USASP2020127126

PATIENT
  Age: 13 Year
  Sex: Male

DRUGS (7)
  1. HUMIRA [Concomitant]
     Active Substance: ADALIMUMAB
     Indication: JUVENILE IDIOPATHIC ARTHRITIS
     Dosage: UNK
     Dates: start: 2011
  2. METHOTREXATE. [Concomitant]
     Active Substance: METHOTREXATE
     Indication: JUVENILE IDIOPATHIC ARTHRITIS
     Dosage: UNK (ADMINISTERING ORALLY THE METHOTREXATE INJECTABLE AT FIRST); SWITCHED TO THE PILLS; SWITCHED TO
  3. ORENCIA [Concomitant]
     Active Substance: ABATACEPT
     Indication: JUVENILE IDIOPATHIC ARTHRITIS
     Dosage: UNK (RECEIVED TWO INFUSION LOADING DOSES; UT THEN AFTER THAT, IT IS AN INJECTION WEEKLY)
  4. ENBREL [Suspect]
     Active Substance: ETANERCEPT
     Dosage: UNK UNK, 2 TIMES/WK
     Route: 065
  5. OTEZLA [Suspect]
     Active Substance: APREMILAST
     Indication: PSORIASIS
  6. OTEZLA [Suspect]
     Active Substance: APREMILAST
     Indication: JUVENILE IDIOPATHIC ARTHRITIS
     Dosage: UNK UNK, BID
     Route: 048
     Dates: start: 2019
  7. ENBREL [Suspect]
     Active Substance: ETANERCEPT
     Indication: JUVENILE IDIOPATHIC ARTHRITIS
     Dosage: UNK UNK, QWK
     Route: 065

REACTIONS (11)
  - Drug specific antibody present [Unknown]
  - Juvenile idiopathic arthritis [Unknown]
  - Headache [Recovered/Resolved]
  - Depression [Unknown]
  - Decreased appetite [Recovered/Resolved]
  - Off label use [Unknown]
  - Nausea [Recovered/Resolved]
  - Psoriasis [Unknown]
  - Drug ineffective [Unknown]
  - Therapeutic product effect decreased [Unknown]
  - Chillblains [Unknown]

NARRATIVE: CASE EVENT DATE: 2019
